FAERS Safety Report 6371632-9 (Version None)
Quarter: 2009Q3

REPORT INFORMATION
  Report Type: 
  Country: None (occurrence: None)
  Receive Date: 20090923
  Receipt Date: 20080807
  Transmission Date: 20100115
  Serious: Yes (Other)
  Sender: FDA-Public Use
  Company Number: US-ASTRAZENECA-2008UW07530

PATIENT
  Age: 27 Year
  Sex: Female

DRUGS (12)
  1. SEROQUEL [Suspect]
     Indication: AGGRESSION
     Dosage: HIGHEST WAS 1000 MG/DAY
     Route: 048
     Dates: start: 20070316
  2. SEROQUEL [Suspect]
     Indication: MOOD SWINGS
     Dosage: HIGHEST WAS 1000 MG/DAY
     Route: 048
     Dates: start: 20070316
  3. SEROQUEL [Suspect]
     Route: 048
     Dates: end: 20080301
  4. SEROQUEL [Suspect]
     Route: 048
     Dates: end: 20080301
  5. SEROQUEL [Suspect]
     Dosage: HIGHEST WAS 1000 MG/DAY
     Route: 048
     Dates: end: 20080304
  6. SEROQUEL [Suspect]
     Dosage: HIGHEST WAS 1000 MG/DAY
     Route: 048
     Dates: end: 20080304
  7. TEGRETOL [Concomitant]
     Route: 048
     Dates: start: 20070316
  8. RISPERDAL [Concomitant]
  9. TRILEPTAL [Concomitant]
  10. ZOLOFT [Concomitant]
     Indication: DEPRESSED MOOD
     Dates: start: 20070316
  11. HALDOL [Concomitant]
  12. NAPROXEN [Concomitant]

REACTIONS (1)
  - CATARACT [None]
